FAERS Safety Report 7562838-1 (Version None)
Quarter: 2011Q2

REPORT INFORMATION
  Report Type: 
  Country: None (occurrence: None)
  Receive Date: 20110622
  Receipt Date: 20110615
  Transmission Date: 20111010
  Serious: Yes (Hospitalization, Other)
  Sender: FDA-Public Use
  Company Number: US-JNJFOC-20110303603

PATIENT
  Sex: Male
  Weight: 89.99 kg

DRUGS (4)
  1. LEVAQUIN [Suspect]
     Indication: URINARY TRACT INFECTION
     Route: 048
     Dates: start: 20110224, end: 20110303
  2. ALL OTHER THERAPEUTIC PRODUCTS [Concomitant]
     Route: 065
  3. LEVAQUIN [Suspect]
     Indication: PROSTATITIS
     Route: 048
     Dates: start: 20110224, end: 20110303
  4. CONCERTA [Suspect]
     Indication: PRODUCT USED FOR UNKNOWN INDICATION
     Route: 065

REACTIONS (16)
  - SWELLING [None]
  - MUSCULAR WEAKNESS [None]
  - MOOD SWINGS [None]
  - DECREASED APPETITE [None]
  - FACE OEDEMA [None]
  - ASTHENIA [None]
  - GAIT DISTURBANCE [None]
  - CHILLS [None]
  - BLOOD PRESSURE INCREASED [None]
  - FEELING ABNORMAL [None]
  - TREMOR [None]
  - FATIGUE [None]
  - ILL-DEFINED DISORDER [None]
  - JOINT SWELLING [None]
  - RENAL FAILURE [None]
  - OEDEMA PERIPHERAL [None]
